FAERS Safety Report 9164535 (Version 2)
Quarter: 2013Q2

REPORT INFORMATION
  Report Type: Report from Study
  Country: US (occurrence: US)
  Receive Date: 20130315
  Receipt Date: 20130625
  Transmission Date: 20140414
  Serious: No
  Sender: FDA-Public Use
  Company Number: PHEH2013US005941

PATIENT
  Age: 66 Year
  Sex: Female

DRUGS (7)
  1. TASIGNA [Suspect]
     Indication: CHRONIC MYELOID LEUKAEMIA
     Dosage: 400 MG, BID
     Route: 048
     Dates: start: 20130327, end: 20130617
  2. LEXAPRO [Concomitant]
  3. PROCHLORPERAZINE [Concomitant]
  4. CELEXA [Concomitant]
  5. COREG [Concomitant]
  6. BUMEX [Concomitant]
  7. KLOR-CON [Concomitant]

REACTIONS (5)
  - Seborrhoeic dermatitis [Recovering/Resolving]
  - Rash [Unknown]
  - Pruritus [Unknown]
  - Muscle spasms [Unknown]
  - Tenderness [Unknown]
